FAERS Safety Report 10725918 (Version 2)
Quarter: 2015Q1

REPORT INFORMATION
  Report Type: Spontaneous
  Country: FI (occurrence: FI)
  Receive Date: 20150121
  Receipt Date: 20150126
  Transmission Date: 20150721
  Serious: Yes (Other)
  Sender: FDA-Public Use
  Company Number: FI-AMGEN-FINSL2015004411

PATIENT
  Sex: Female
  Weight: 58.5 kg

DRUGS (2)
  1. PROLIA [Suspect]
     Active Substance: DENOSUMAB
     Indication: OSTEOPOROSIS
     Dosage: 60 MG, Q6MO
     Route: 065
     Dates: start: 201412
  2. KALCIPOS [Concomitant]
     Active Substance: CALCIUM CARBONATE

REACTIONS (8)
  - Eye pruritus [Unknown]
  - Malaise [Unknown]
  - Dizziness [Unknown]
  - Burning sensation [Unknown]
  - Eye haemorrhage [Unknown]
  - Dyspnoea [Unknown]
  - Eye inflammation [Unknown]
  - Feeling hot [Unknown]
